FAERS Safety Report 6391499-2 (Version None)
Quarter: 2009Q4

REPORT INFORMATION
  Report Type: 
  Country: None (occurrence: None)
  Receive Date: 20091007
  Receipt Date: 20091001
  Transmission Date: 20100525
  Serious: Yes (Hospitalization)
  Sender: FDA-Public Use
  Company Number: US-BRISTOL-MYERS SQUIBB COMPANY-14803084

PATIENT
  Age: 84 Year
  Sex: Female
  Weight: 60 kg

DRUGS (9)
  1. GLUCOPHAGE XR [Suspect]
     Indication: DIABETES MELLITUS
     Dosage: 2TABS,MORE THAN 2 YEARS
  2. GLUCOTROL [Suspect]
  3. CARVEDILOL [Concomitant]
  4. CELEXA [Concomitant]
  5. LASIX [Concomitant]
  6. LIPITOR [Concomitant]
  7. OSCAL [Concomitant]
  8. PLAVIX [Concomitant]
     Route: 048
  9. ASCORBIC ACID [Concomitant]

REACTIONS (5)
  - DIZZINESS [None]
  - FALL [None]
  - OEDEMA PERIPHERAL [None]
  - PELVIC FRACTURE [None]
  - VOMITING [None]
